FAERS Safety Report 10419839 (Version 1)
Quarter: 2014Q3

REPORT INFORMATION
  Report Type: Spontaneous
  Country: US (occurrence: None)
  Receive Date: 20140828
  Receipt Date: 20140828
  Transmission Date: 20150326
  Serious: Yes (Hospitalization)
  Sender: FDA-Public Use
  Company Number: FK201403395

PATIENT
  Age: 63 Year
  Sex: Male
  Weight: 84.5 kg

DRUGS (5)
  1. RITUXIMAB (RITUXIMAB) [Concomitant]
     Active Substance: RITUXIMAB
  2. CISPLATIN. [Suspect]
     Active Substance: CISPLATIN
     Indication: PRODUCT USED FOR UNKNOWN INDICATION
     Dates: start: 20140806
  3. DEXAMETHASON (DEXAMETHASONE) [Concomitant]
  4. CYTARABINE (CYTARABINE) [Concomitant]
     Active Substance: CYTARABINE
  5. TEMSIROLIMUS [Suspect]
     Active Substance: TEMSIROLIMUS
     Indication: PRODUCT USED FOR UNKNOWN INDICATION
     Dosage: 50 MG, CYCLICAL
     Dates: start: 20140806

REACTIONS (1)
  - Renal failure [None]

NARRATIVE: CASE EVENT DATE: 20140708
